FAERS Safety Report 6807573-X (Version None)
Quarter: 2010Q2

REPORT INFORMATION
  Report Type: 
  Country: None (occurrence: None)
  Receive Date: 20100629
  Receipt Date: 20081107
  Transmission Date: 20101027
  Serious: No
  Sender: FDA-Public Use
  Company Number: US-PFIZER INC-2008094612

PATIENT
  Sex: Female
  Weight: 67.272 kg

DRUGS (3)
  1. ARTHROTEC [Suspect]
     Indication: OSTEOARTHRITIS
     Dosage: 50 MG/200 MCG; TDD:100 MG/400 MCG
     Dates: start: 20080913
  2. CLONAZEPAM [Concomitant]
  3. SOMA [Concomitant]

REACTIONS (3)
  - FEELING JITTERY [None]
  - INITIAL INSOMNIA [None]
  - PSYCHOMOTOR HYPERACTIVITY [None]
